FAERS Safety Report 4685164-7 (Version None)
Quarter: 2005Q2

REPORT INFORMATION
  Report Type: 
  Country: None (occurrence: None)
  Receive Date: 20050607
  Receipt Date: 20050413
  Transmission Date: 20051028
  Serious: Yes (Death)
  Sender: FDA-Public Use
  Company Number: 2005S1002394

PATIENT
  Age: 80 Year
  Sex: Male
  Weight: 69.4003 kg

DRUGS (10)
  1. CLOZAPINE [Suspect]
     Indication: SCHIZOPHRENIA
     Dosage: 25 MG; BID; PO
     Route: 048
     Dates: start: 20020101, end: 20050401
  2. CLOZAPINE [Suspect]
     Indication: SCHIZOPHRENIA
     Dosage: 200 MG; BID; PO
     Route: 048
     Dates: start: 20020101, end: 20050401
  3. CLONIDINE [Concomitant]
  4. DOCUSATE SODIUM [Concomitant]
  5. SODIUM PHOSPHATE [Concomitant]
  6. DIBASIC/SODIUM [Concomitant]
  7. PHOSPHATE [Concomitant]
  8. PARACETAMOL [Concomitant]
  9. BISACODYL [Concomitant]
  10. PHENOL [Concomitant]

REACTIONS (1)
  - DEATH [None]
